FAERS Safety Report 8129728-7 (Version None)
Quarter: 2012Q1

REPORT INFORMATION
  Report Type: 
  Country: None (occurrence: None)
  Receive Date: 20120210
  Receipt Date: 20120202
  Transmission Date: 20120608
  Serious: Yes (Hospitalization)
  Sender: FDA-Public Use
  Company Number: US-B.I. PHARMACEUTICALS,INC./RIDGEFIELD-2012-BP-02469BP

PATIENT
  Age: 6 Year
  Sex: Female

DRUGS (2)
  1. KAPVAY [Suspect]
  2. CLONIDINE HCL [Suspect]

REACTIONS (1)
  - HALLUCINATION [None]
